FAERS Safety Report 9304870 (Version 1)
Quarter: 2013Q2

REPORT INFORMATION
  Report Type: Spontaneous
  Country: US (occurrence: None)
  Receive Date: 20130521
  Receipt Date: 20130521
  Transmission Date: 20140414
  Serious: Yes (Life-Threatening, Hospitalization)
  Sender: FDA-Public Use
  Company Number: None

PATIENT
  Age: 60 Year
  Sex: Female
  Weight: 65.32 kg

DRUGS (1)
  1. CIPROFLOXACIN [Suspect]
     Indication: DYSURIA

REACTIONS (6)
  - Tendon pain [None]
  - Pain in extremity [None]
  - Gait disturbance [None]
  - Tinnitus [None]
  - Insomnia [None]
  - Muscle tightness [None]
